FAERS Safety Report 6397601-0 (Version None)
Quarter: 2009Q4

REPORT INFORMATION
  Report Type: 
  Country: None (occurrence: None)
  Receive Date: 20091012
  Receipt Date: 20090928
  Transmission Date: 20100525
  Serious: Yes (Other)
  Sender: FDA-Public Use
  Company Number: PHHY2009IE19766

PATIENT
  Sex: Male

DRUGS (5)
  1. CLOZARIL [Suspect]
     Indication: SCHIZOPHRENIA
     Dosage: UNK
     Dates: start: 19990209
  2. VALPROATE SODIUM [Concomitant]
     Dosage: 500 MG, UNK
     Route: 048
     Dates: start: 20060101
  3. INDERAL [Concomitant]
     Indication: HYPERTENSION
     Dosage: 40 MG, UNK
     Route: 048
     Dates: start: 20060101
  4. CITALOPRAM HYDROBROMIDE [Concomitant]
     Indication: DEPRESSION
     Dosage: 20 MG, UNK
     Route: 048
     Dates: start: 20060101
  5. LOSEC [Concomitant]
     Dosage: 20 MG, UNK
     Route: 048
     Dates: start: 20080101

REACTIONS (6)
  - ANTICONVULSANT DRUG LEVEL DECREASED [None]
  - BLOOD PRESSURE FLUCTUATION [None]
  - FATIGUE [None]
  - HEART RATE IRREGULAR [None]
  - HYPERCHOLESTEROLAEMIA [None]
  - PULSE ABNORMAL [None]
